FAERS Safety Report 10671453 (Version 2)
Quarter: 2015Q1

REPORT INFORMATION
  Report Type: Report from Study
  Country: DE (occurrence: DE)
  Receive Date: 20141223
  Receipt Date: 20150202
  Transmission Date: 20150720
  Serious: Yes (Hospitalization)
  Sender: FDA-Public Use
  Company Number: DE-NAPPMUNDI-DEU-2014-0015903

PATIENT
  Age: 53 Year
  Sex: Male

DRUGS (10)
  1. LACTULOSE. [Concomitant]
     Active Substance: LACTULOSE
     Indication: CONSTIPATION
     Dosage: UNK
     Route: 048
     Dates: start: 201311
  2. MACROGOL [Concomitant]
     Active Substance: POLYETHYLENE GLYCOLS
     Indication: CONSTIPATION
     Dosage: UNK, DAILY
     Route: 048
     Dates: start: 20131128
  3. TEMSIROLIMUS [Suspect]
     Active Substance: TEMSIROLIMUS
     Indication: PRODUCT USED FOR UNKNOWN INDICATION
     Dosage: 25 MG, WEEKLY
     Route: 065
     Dates: start: 20131126, end: 20131219
  4. MOVICOL [Concomitant]
     Active Substance: POLYETHYLENE GLYCOL 3350\POTASSIUM CHLORIDE\SODIUM BICARBONATE\SODIUM CHLORIDE
     Indication: CONSTIPATION
     Dosage: UNK
     Route: 048
     Dates: start: 2013
  5. PALLADON RETARD 16 MG [Suspect]
     Active Substance: HYDROMORPHONE HYDROCHLORIDE
     Indication: PAIN
     Dosage: 16 MG, DAILY
     Route: 048
     Dates: start: 201311, end: 20131229
  6. PALLADON 2,6MG HARTKAPSELN [Suspect]
     Active Substance: HYDROMORPHONE
     Indication: PAIN
     Dosage: 2.4 MG, UNK
     Route: 048
     Dates: start: 201311, end: 201312
  7. AMITRIPTYLINE [Concomitant]
     Active Substance: AMITRIPTYLINE
     Indication: DEPRESSION
     Dosage: UNK
     Route: 048
     Dates: start: 201312
  8. VALSARTAN. [Concomitant]
     Active Substance: VALSARTAN
     Indication: HYPERTENSION
     Dosage: 320 UNK, UNK
     Route: 048
     Dates: start: 2011
  9. NOVALGIN [Concomitant]
     Active Substance: METAMIZOLE SODIUM
     Indication: PAIN
     Dosage: UNK
     Route: 048
  10. HCT [Concomitant]
     Active Substance: HYDROCHLOROTHIAZIDE
     Indication: HYPERTENSION
     Dosage: UNK
     Route: 048
     Dates: start: 2011

REACTIONS (3)
  - Nausea [Recovered/Resolved]
  - Vertigo [Recovered/Resolved]
  - Vomiting [Recovered/Resolved]

NARRATIVE: CASE EVENT DATE: 20131216
